FAERS Safety Report 9963532 (Version 1)
Quarter: 2014Q1

REPORT INFORMATION
  Report Type: Report from Study
  Country: US (occurrence: US)
  Receive Date: 20140305
  Receipt Date: 20140305
  Transmission Date: 20141002
  Serious: No
  Sender: FDA-Public Use
  Company Number: US-ABBVIE-13P-163-1122728-00

PATIENT
  Age: 22 Year
  Sex: Male

DRUGS (9)
  1. HUMIRA [Suspect]
     Indication: CROHN^S DISEASE
     Route: 058
     Dates: start: 20130713, end: 20130713
  2. VITAMIN D3 [Concomitant]
     Indication: VITAMIN SUPPLEMENTATION
  3. MVI [Concomitant]
     Indication: VITAMIN SUPPLEMENTATION
  4. FOLIC ACID [Concomitant]
     Indication: VITAMIN SUPPLEMENTATION
  5. B 12 [Concomitant]
     Indication: CROHN^S DISEASE
  6. COUMADIN [Concomitant]
     Indication: PULMONARY EMBOLISM
  7. 6MP [Concomitant]
     Indication: CROHN^S DISEASE
  8. PENTASA [Concomitant]
     Indication: CROHN^S DISEASE
  9. ENTECORT [Concomitant]
     Indication: CROHN^S DISEASE

REACTIONS (1)
  - Injection site pain [Recovered/Resolved]
